FAERS Safety Report 18263606 (Version 2)
Quarter: 2021Q1

REPORT INFORMATION
  Report Type: Report from Study
  Country: JP (occurrence: JP)
  Receive Date: 20200914
  Receipt Date: 20210122
  Transmission Date: 20210419
  Serious: Yes (Other)
  Sender: FDA-Public Use
  Company Number: JP-OTSUKA-2016_008857

PATIENT
  Age: 47 Year
  Sex: Female
  Weight: 57.3 kg

DRUGS (11)
  1. TOLVAPTAN [Suspect]
     Active Substance: TOLVAPTAN
     Dosage: 90 MG/DAY, DIVIDED 2 DOSES(EACH DOSE UNKNOWN)
     Route: 048
     Dates: start: 20180910, end: 20200105
  2. TOLVAPTAN [Suspect]
     Active Substance: TOLVAPTAN
     Dosage: 30 MG, QD
     Route: 048
     Dates: start: 20200413, end: 20200712
  3. NORVASC [Concomitant]
     Active Substance: AMLODIPINE BESYLATE
     Indication: PRODUCT USED FOR UNKNOWN INDICATION
     Dosage: 5 MG, QD
     Route: 048
     Dates: start: 20170425, end: 20200511
  4. TOLVAPTAN [Suspect]
     Active Substance: TOLVAPTAN
     Dosage: 45 MG/DAY, DIVIDED 2 DOSES
     Route: 048
     Dates: start: 20150714, end: 20170703
  5. ADALAT [Concomitant]
     Active Substance: NIFEDIPINE
     Indication: PRODUCT USED FOR UNKNOWN INDICATION
     Dosage: 40 MG, QD
     Route: 048
     Dates: start: 20200511
  6. TOLVAPTAN [Suspect]
     Active Substance: TOLVAPTAN
     Dosage: 75 MG/DAY, DIVIDED 2 DOSES (EACH DOSE UNKNOWN)
     Route: 048
     Dates: start: 20180806, end: 20180909
  7. TOLVAPTAN [Suspect]
     Active Substance: TOLVAPTAN
     Dosage: 60 MG, QD
     Route: 048
     Dates: start: 20200210, end: 20200308
  8. TOLVAPTAN [Suspect]
     Active Substance: TOLVAPTAN
     Dosage: 45 MG, QD
     Route: 048
     Dates: start: 20200309, end: 20200412
  9. TOLVAPTAN [Suspect]
     Active Substance: TOLVAPTAN
     Indication: CONGENITAL CYSTIC KIDNEY DISEASE
     Dosage: 15 MG, QD
     Route: 048
     Dates: start: 20200713, end: 20200817
  10. TOLVAPTAN [Suspect]
     Active Substance: TOLVAPTAN
     Dosage: 60 MG/DAY, DIVIDED 2 DOSES
     Route: 048
     Dates: start: 20170704, end: 20180805
  11. TOLVAPTAN [Suspect]
     Active Substance: TOLVAPTAN
     Dosage: 75 MG/DAY, DIVIDED 2 DOSES (EACH DOSE UNKNOWN)
     Route: 048
     Dates: start: 20200106, end: 20200209

REACTIONS (6)
  - Glomerular filtration rate decreased [Unknown]
  - Hypernatraemia [Recovered/Resolved]
  - Drug-induced liver injury [Recovered/Resolved]
  - Inappropriate schedule of product administration [Unknown]
  - Hypertension [Recovering/Resolving]
  - Nephrogenic anaemia [Recovered/Resolved]

NARRATIVE: CASE EVENT DATE: 20150721
